FAERS Safety Report 4395963-7 (Version None)
Quarter: 2004Q3

REPORT INFORMATION
  Report Type: 
  Country: None (occurrence: None)
  Receive Date: 20040707
  Receipt Date: 20040622
  Transmission Date: 20050211
  Serious: Yes (Hospitalization)
  Sender: FDA-Public Use
  Company Number: MK200309-0327-3

PATIENT
  Age: 34 Year
  Sex: Female

DRUGS (10)
  1. TOFRANIL [Suspect]
     Indication: OVERDOSE
     Dosage: 442 TABLETS, ONE TIME
     Dates: start: 20030629
  2. AMOXAN [Suspect]
     Dosage: 270 TABLETS ONE TIME
     Dates: start: 20030629
  3. TRYPTANOL [Suspect]
     Dosage: 30 TABLETS ONE TIME
     Dates: start: 20030629
  4. DEPAS [Suspect]
     Dosage: 116 TABLETS ONE TIME
     Dates: start: 20030629
  5. LUVOX [Suspect]
     Dosage: 120 TABLETS ONE TIME
     Dates: start: 20030629
  6. DEPROMEL [Suspect]
     Dosage: 6 TABLETS ONE TIME
     Dates: start: 20030629
  7. RESLIN [Suspect]
     Dosage: 48 TABLETS ONE TIME
     Dates: start: 20030629
  8. DOGMATYL [Suspect]
     Dosage: 16 TABLETS ONE TIME
     Dates: start: 20030629
  9. ATROPINE SULFATE [Suspect]
  10. PURSENNID [Concomitant]

REACTIONS (20)
  - ATELECTASIS [None]
  - ATRIOVENTRICULAR BLOCK FIRST DEGREE [None]
  - BLOOD PRESSURE DECREASED [None]
  - BLOOD SODIUM INCREASED [None]
  - BUNDLE BRANCH BLOCK RIGHT [None]
  - CARDIAC ARREST [None]
  - CARDIOTOXICITY [None]
  - CIRCULATORY COLLAPSE [None]
  - COMA [None]
  - CONDUCTION DISORDER [None]
  - CONVULSION [None]
  - DEPRESSED LEVEL OF CONSCIOUSNESS [None]
  - HEART RATE DECREASED [None]
  - INTENTIONAL OVERDOSE [None]
  - LUNG INFILTRATION [None]
  - PUPILLARY REFLEX IMPAIRED [None]
  - QRS AXIS ABNORMAL [None]
  - RESPIRATORY ACIDOSIS [None]
  - RESPIRATORY DEPRESSION [None]
  - RESPIRATORY RATE INCREASED [None]
